FAERS Safety Report 23451976 (Version 6)
Quarter: 2024Q4

REPORT INFORMATION
  Report Type: Report from Study
  Country: US (occurrence: US)
  Receive Date: 20240129
  Receipt Date: 20241203
  Transmission Date: 20250115
  Serious: Yes (Hospitalization, Other)
  Sender: TAKEDA
  Company Number: US-TAKEDA-2023TUS083333

PATIENT
  Age: 74 Year
  Sex: Female
  Weight: 53 kg

DRUGS (24)
  1. TEDUGLUTIDE [Suspect]
     Active Substance: TEDUGLUTIDE
     Indication: Short-bowel syndrome
     Dosage: 2.7 MILLIGRAM, QD
  2. TEDUGLUTIDE [Suspect]
     Active Substance: TEDUGLUTIDE
     Dosage: 2.7 MILLIGRAM, QD
  3. TEDUGLUTIDE [Suspect]
     Active Substance: TEDUGLUTIDE
     Dosage: 2.7 MILLIGRAM, QD
  4. TEDUGLUTIDE [Suspect]
     Active Substance: TEDUGLUTIDE
     Dosage: 2.7 MILLIGRAM, QD
  5. TEDUGLUTIDE [Suspect]
     Active Substance: TEDUGLUTIDE
     Dosage: 2.7 MILLIGRAM, QD
  6. TEDUGLUTIDE [Suspect]
     Active Substance: TEDUGLUTIDE
     Dosage: 2.7 MILLIGRAM, QD
  7. TEDUGLUTIDE [Suspect]
     Active Substance: TEDUGLUTIDE
     Dosage: 2.7 MILLIGRAM, QD
  8. CODEINE [Suspect]
     Active Substance: CODEINE
     Indication: Product used for unknown indication
     Dosage: UNK
  9. NITRO-DUR [Concomitant]
     Active Substance: NITROGLYCERIN
     Dosage: 0.4 MILLIGRAM
  10. SIMVASTATIN [Concomitant]
     Active Substance: SIMVASTATIN
     Dosage: UNK
  11. DILTIAZEM [Concomitant]
     Active Substance: DILTIAZEM
     Dosage: UNK UNK, QD
  12. POTASSIUM CHLORIDE [Concomitant]
     Active Substance: POTASSIUM CHLORIDE
     Dosage: UNK
  13. IRON [Concomitant]
     Active Substance: IRON
     Dosage: UNK
  14. B12 ACTIVE [Concomitant]
     Dosage: UNK
  15. BIOTIN [Concomitant]
     Active Substance: BIOTIN
     Dosage: UNK
  16. NITROGLYCERIN [Concomitant]
     Active Substance: NITROGLYCERIN
     Dosage: UNK
  17. VITAMIN D3 [Concomitant]
     Active Substance: CHOLECALCIFEROL
     Dosage: UNK
  18. MAGNESIUM OXIDE [Concomitant]
     Active Substance: MAGNESIUM OXIDE
     Dosage: UNK
  19. VENLAFAXINE HCL [Concomitant]
     Active Substance: VENLAFAXINE HYDROCHLORIDE
     Dosage: UNK UNK, QD
  20. VENLAFAXINE HCL [Concomitant]
     Active Substance: VENLAFAXINE HYDROCHLORIDE
     Dosage: 75 MILLIGRAM, QD
  21. LISINOPRIL [Concomitant]
     Active Substance: LISINOPRIL
     Dosage: UNK
  22. IMODIUM A-D [Concomitant]
     Active Substance: LOPERAMIDE HYDROCHLORIDE
     Dosage: UNK
  23. IBUPROFEN [Concomitant]
     Active Substance: IBUPROFEN
     Dosage: UNK
  24. CODEINE SULFATE [Concomitant]
     Active Substance: CODEINE SULFATE
     Dosage: UNK

REACTIONS (16)
  - Colostomy closure [Unknown]
  - Surgery [Unknown]
  - Anaemia [Unknown]
  - Gastrointestinal disorder [Unknown]
  - Wound infection [Unknown]
  - Swelling face [Unknown]
  - Drug hypersensitivity [Unknown]
  - Dyspepsia [Unknown]
  - Muscle spasms [Unknown]
  - Pain [Recovering/Resolving]
  - Insurance issue [Unknown]
  - Haemorrhage [Unknown]
  - Product use issue [Unknown]
  - Sinusitis [Unknown]
  - Abdominal pain upper [Unknown]
  - Nausea [Recovering/Resolving]

NARRATIVE: CASE EVENT DATE: 20240315
